FAERS Safety Report 8218789-2 (Version None)
Quarter: 2012Q1

REPORT INFORMATION
  Report Type: 
  Country: None (occurrence: None)
  Receive Date: 20120307
  Receipt Date: 20100616
  Transmission Date: 20120608
  Serious: Yes (Hospitalization)
  Sender: FDA-Public Use
  Company Number: PHHY2010US33641

PATIENT
  Age: 84 Year
  Sex: Male

DRUGS (2)
  1. AFINITOR [Suspect]
     Indication: RENAL CANCER
     Dosage: 10 MG DAILY, ORAL ; 10 MG, DAILY, ORAL
     Route: 048
     Dates: start: 20091008
  2. AFINITOR [Suspect]
     Indication: RENAL CANCER
     Dosage: 10 MG DAILY, ORAL ; 10 MG, DAILY, ORAL
     Route: 048
     Dates: start: 20100120

REACTIONS (3)
  - COUGH [None]
  - DYSPHAGIA [None]
  - PNEUMONIA [None]
